FAERS Safety Report 11745902 (Version 3)
Quarter: 2016Q1

REPORT INFORMATION
  Report Type: Report from Study
  Country: NL (occurrence: NL)
  Receive Date: 20151117
  Receipt Date: 20160217
  Transmission Date: 20160525
  Serious: Yes (Death, Other)
  Sender: FDA-Public Use
  Company Number: PHHY2015NL144777

PATIENT
  Age: 73 Year
  Sex: Female

DRUGS (1)
  1. SANDOSTATIN LAR DEPOT [Suspect]
     Active Substance: OCTREOTIDE ACETATE
     Indication: NEUROENDOCRINE TUMOUR
     Dosage: 30MG/2ML, ONCE EVERY 4 WEEKS
     Route: 030

REACTIONS (2)
  - Terminal state [Unknown]
  - Death [Fatal]

NARRATIVE: CASE EVENT DATE: 20151104
